FAERS Safety Report 10996359 (Version 8)
Quarter: 2017Q2

REPORT INFORMATION
  Report Type: Report from Study
  Country: CA (occurrence: CA)
  Receive Date: 20150408
  Receipt Date: 20170413
  Transmission Date: 20170829
  Serious: Yes (Other)
  Sender: FDA-Public Use
  Company Number: CA-ROCHE-1378706

PATIENT
  Age: 66 Year
  Sex: Male

DRUGS (26)
  1. CELLCEPT [Suspect]
     Active Substance: MYCOPHENOLATE MOFETIL\MYCOPHENOLATE MOFETIL HYDROCHLORIDE
     Indication: PRODUCT USED FOR UNKNOWN INDICATION
     Route: 065
  2. BRICANYL [Concomitant]
     Active Substance: TERBUTALINE SULFATE
  3. PREDNISONE. [Concomitant]
     Active Substance: PREDNISONE
  4. RITUXAN [Suspect]
     Active Substance: RITUXIMAB
     Dosage: LAST RITUXIMAB INFUSION WAS ON 22/DEC/2016
     Route: 042
     Dates: start: 20131125
  5. VALTREX [Concomitant]
     Active Substance: VALACYCLOVIR HYDROCHLORIDE
  6. NASONEX [Concomitant]
     Active Substance: MOMETASONE FUROATE
  7. ALTACE [Concomitant]
     Active Substance: RAMIPRIL
  8. REFRESH PLUS [Concomitant]
     Active Substance: CARBOXYMETHYLCELLULOSE SODIUM
  9. DIAMICRON [Concomitant]
     Active Substance: GLICLAZIDE
  10. TYLENOL [Concomitant]
     Active Substance: ACETAMINOPHEN
     Route: 048
     Dates: start: 20160428
  11. NEURONTIN [Concomitant]
     Active Substance: GABAPENTIN
  12. ADVAIR HFA [Concomitant]
     Active Substance: FLUTICASONE PROPIONATE\SALMETEROL XINAFOATE
  13. RITUXAN [Suspect]
     Active Substance: RITUXIMAB
     Indication: MYOSITIS
     Dosage: FREQUENCY: DAY 1 AND 15
     Route: 042
     Dates: start: 20120730
  14. TYLENOL [Concomitant]
     Active Substance: ACETAMINOPHEN
     Indication: PREMEDICATION
     Route: 048
     Dates: start: 20120730, end: 20140807
  15. TYLENOL [Concomitant]
     Active Substance: ACETAMINOPHEN
     Route: 048
     Dates: start: 20151217, end: 20151217
  16. BENADRYL [Concomitant]
     Active Substance: DIPHENHYDRAMINE HYDROCHLORIDE
     Indication: PREMEDICATION
     Route: 048
     Dates: start: 20120730
  17. CRESTOR [Concomitant]
     Active Substance: ROSUVASTATIN CALCIUM
  18. TYLENOL [Concomitant]
     Active Substance: ACETAMINOPHEN
     Route: 048
     Dates: start: 20150409, end: 20150827
  19. SOLU-MEDROL [Concomitant]
     Active Substance: METHYLPREDNISOLONE SODIUM SUCCINATE
     Indication: PREMEDICATION
     Route: 042
     Dates: start: 20120730
  20. ATIVAN [Concomitant]
     Active Substance: LORAZEPAM
  21. VALACYCLOVIR [Suspect]
     Active Substance: VALACYCLOVIR HYDROCHLORIDE
     Indication: PRODUCT USED FOR UNKNOWN INDICATION
     Dosage: FOR 5 WEEKS
     Route: 065
  22. PANTOLOC [Concomitant]
     Active Substance: PANTOPRAZOLE SODIUM
  23. PENNSAID [Concomitant]
     Active Substance: DICLOFENAC SODIUM
  24. ASA [Concomitant]
     Active Substance: ASPIRIN
  25. FUROSEMIDE. [Concomitant]
     Active Substance: FUROSEMIDE
  26. EZETROL [Concomitant]
     Active Substance: EZETIMIBE

REACTIONS (12)
  - Heart rate decreased [Unknown]
  - Diastolic dysfunction [Unknown]
  - Off label use [Unknown]
  - Body temperature decreased [Unknown]
  - Cataract [Not Recovered/Not Resolved]
  - Infusion related reaction [Unknown]
  - Drug ineffective [Unknown]
  - Weight decreased [Unknown]
  - Blood pressure fluctuation [Unknown]
  - Cytomegalovirus infection [Unknown]
  - Oxygen saturation decreased [Unknown]
  - Pulmonary hypertension [Not Recovered/Not Resolved]

NARRATIVE: CASE EVENT DATE: 201401
